FAERS Safety Report 20610680 (Version 2)
Quarter: 2022Q2

REPORT INFORMATION
  Report Type: Spontaneous
  Country: US (occurrence: US)
  Receive Date: 20220318
  Receipt Date: 20220413
  Transmission Date: 20220721
  Serious: No
  Sender: FDA-Public Use
  Company Number: US-AIMMUNE THERAPEUTICS, INC.-2022AIMT00155

PATIENT

DRUGS (2)
  1. PALFORZIA [Suspect]
     Active Substance: PEANUT
     Indication: Food allergy
     Dosage: 80 MG, 1X/DAY
     Route: 048
     Dates: start: 20211210
  2. PALFORZIA [Suspect]
     Active Substance: PEANUT
     Dosage: 80 MG, ONCE, LAST DOSE PRIOR EVENT
     Route: 048
     Dates: start: 20211211, end: 20211211

REACTIONS (1)
  - Vomiting [Recovered/Resolved]

NARRATIVE: CASE EVENT DATE: 20211211
